FAERS Safety Report 9450596 (Version 1)
Quarter: 2013Q3

REPORT INFORMATION
  Report Type: Spontaneous
  Country: US (occurrence: US)
  Receive Date: 20130809
  Receipt Date: 20130809
  Transmission Date: 20140515
  Serious: Yes (Hospitalization)
  Sender: FDA-Public Use
  Company Number: US-BAYER-2013-095329

PATIENT
  Age: 24 Year
  Sex: Female
  Weight: 65.76 kg

DRUGS (11)
  1. YAZ [Suspect]
  2. OCELLA [Suspect]
  3. ACETAMINOPHEN W/HYDROCODONE [Concomitant]
     Dosage: 10/325 MG
  4. AMOXICILLIN [Concomitant]
     Dosage: 250MG/5 ML
  5. CEFUROXIME AXETIL [Concomitant]
     Dosage: 500 MG, UNK
  6. CIPROFLOXACIN HCL [Concomitant]
     Dosage: 500 MG, UNK
  7. LIDOCAINE [Concomitant]
     Dosage: 2 %, UNK
  8. MUPIROCIN [Concomitant]
     Dosage: 2 UNK, UNK
  9. PROMETHAZINE [Concomitant]
     Dosage: 25 MG, UNK
  10. HYDROCODONE [Concomitant]
  11. VICODIN [Concomitant]

REACTIONS (1)
  - Pulmonary embolism [Recovered/Resolved]
